FAERS Safety Report 18236408 (Version 2)
Quarter: 2020Q3

REPORT INFORMATION
  Report Type: Spontaneous
  Country: US (occurrence: US)
  Receive Date: 20200907
  Receipt Date: 20200916
  Transmission Date: 20201103
  Serious: No
  Sender: FDA-Public Use
  Company Number: US-ALEMBIC PHARMACUETICALS LIMITED-2020SCAL000372

PATIENT

DRUGS (3)
  1. ZYRTEC [Concomitant]
     Active Substance: CETIRIZINE HYDROCHLORIDE
     Indication: HYPERSENSITIVITY
     Dosage: 10 MILLIGRAM, OD, ONCE A DAY BEFORE BED TIME
     Route: 048
  2. FAMOTIDINE. [Suspect]
     Active Substance: FAMOTIDINE
     Indication: COELIAC DISEASE
     Dosage: 40 MILLIGRAM, BID, ONCE A DAY TO TWICE A DAY (1 TABLET IN THE MORNING AND 1 IN THE EVENING BEFORE ME
     Route: 048
     Dates: start: 202006, end: 20200809
  3. ZYRTEC [Concomitant]
     Active Substance: CETIRIZINE HYDROCHLORIDE
     Indication: SEASONAL ALLERGY

REACTIONS (6)
  - Hypophagia [Recovered/Resolved]
  - Nausea [Recovered/Resolved]
  - Feeding disorder [Recovered/Resolved]
  - Vomiting [Recovered/Resolved]
  - Fluid intake reduced [Recovered/Resolved]
  - Headache [Recovered/Resolved]

NARRATIVE: CASE EVENT DATE: 202006
